FAERS Safety Report 24202267 (Version 1)
Quarter: 2024Q3

REPORT INFORMATION
  Report Type: Spontaneous
  Country: CA (occurrence: CA)
  Receive Date: 20240812
  Receipt Date: 20240812
  Transmission Date: 20241016
  Serious: Yes (Other)
  Sender: BRISTOL MYERS SQUIBB
  Company Number: CA-BRISTOL-MYERS SQUIBB COMPANY-2024-124119

PATIENT
  Sex: Female

DRUGS (2)
  1. SOTYKTU [Suspect]
     Active Substance: DEUCRAVACITINIB
     Indication: Pyoderma gangrenosum
     Dosage: DOSE: 12 MG - LOWERED TO 6MG
  2. SOTYKTU [Suspect]
     Active Substance: DEUCRAVACITINIB
     Dosage: DOSE: 12 MG - LOWERED TO 6MG

REACTIONS (2)
  - Deep vein thrombosis [Unknown]
  - Off label use [Unknown]
